FAERS Safety Report 13599784 (Version 1)
Quarter: 2017Q2

REPORT INFORMATION
  Report Type: Spontaneous
  Country: IT (occurrence: IT)
  Receive Date: 20170601
  Receipt Date: 20170601
  Transmission Date: 20170830
  Serious: Yes (Hospitalization)
  Sender: FDA-Public Use
  Company Number: IT-ROCHE-1940828

PATIENT
  Age: 74 Year
  Sex: Male

DRUGS (8)
  1. CEFTRIAXONE SODIUM. [Suspect]
     Active Substance: CEFTRIAXONE SODIUM
     Indication: LEUKOCYTOSIS
     Route: 042
     Dates: start: 20160721, end: 20160721
  2. PERFALGAN [Concomitant]
     Active Substance: ACETAMINOPHEN
  3. LOSARTAN POTASSIUM. [Concomitant]
     Active Substance: LOSARTAN POTASSIUM
     Route: 048
  4. ATORVASTATIN CALCIUM TRIHYDRATE [Concomitant]
     Active Substance: ATORVASTATIN CALCIUM
     Route: 048
  5. LIMICAN [Concomitant]
     Active Substance: ALIZAPRIDE HYDROCHLORIDE
  6. METRONIDAZOLE. [Suspect]
     Active Substance: METRONIDAZOLE
     Indication: LEUKOCYTOSIS
     Route: 042
     Dates: start: 20160721, end: 20160721
  7. TIKLID [Concomitant]
     Active Substance: TICLOPIDINE HYDROCHLORIDE
     Route: 048
  8. PANTOPRAZOLE [Concomitant]
     Active Substance: PANTOPRAZOLE
     Route: 048

REACTIONS (5)
  - Anaphylactic shock [Unknown]
  - Erythema [Unknown]
  - Cold sweat [Unknown]
  - Syncope [Unknown]
  - Respiratory arrest [Unknown]

NARRATIVE: CASE EVENT DATE: 20160721
